FAERS Safety Report 8767574 (Version 1)
Quarter: 2012Q4

REPORT INFORMATION
  Report Type: 
  Country: US (occurrence: US)
  Receive Date: 20120904
  Receipt Date: 20120904
  Transmission Date: 20130627
  Serious: Yes (Other)
  Sender: FDA-Public Use
  Company Number: PHEH2012US017167

PATIENT
  Age: 30 Year
  Sex: Female

DRUGS (3)
  1. FANAPT [Suspect]
     Indication: SCHIZOPHRENIA
     Dosage: UNK UKN, UNK
     Route: 048
  2. PROZAC [Concomitant]
  3. HALDOL [Concomitant]

REACTIONS (2)
  - Psychotic disorder [Unknown]
  - Abnormal behaviour [Unknown]
